FAERS Safety Report 7771910-2 (Version None)
Quarter: 2011Q3

REPORT INFORMATION
  Report Type: 
  Country: None (occurrence: None)
  Receive Date: 20110922
  Receipt Date: 20110408
  Transmission Date: 20111222
  Serious: No
  Sender: FDA-Public Use
  Company Number: US-ASTRAZENECA-2011SE06057

PATIENT
  Age: 39 Year
  Sex: Female
  Weight: 122.5 kg

DRUGS (4)
  1. ZOLOFT [Concomitant]
     Indication: DEPRESSION
  2. COGENTIN [Concomitant]
     Indication: ADJUVANT THERAPY
  3. SEROQUEL [Suspect]
     Indication: SCHIZOPHRENIA, PARANOID TYPE
     Route: 048
  4. HALDOL [Concomitant]
     Indication: PSYCHOTIC DISORDER
     Dosage: ONCE MONTHLY

REACTIONS (1)
  - OBESITY [None]
